FAERS Safety Report 25266633 (Version 1)
Quarter: 2025Q2

REPORT INFORMATION
  Report Type: Spontaneous
  Country: US (occurrence: US)
  Receive Date: 20250505
  Receipt Date: 20250505
  Transmission Date: 20250717
  Serious: No
  Sender: ROCHE
  Company Number: US-ROCHE-10000273170

PATIENT
  Age: 58 Year
  Sex: Male

DRUGS (9)
  1. MABTHERA [Suspect]
     Active Substance: RITUXIMAB
     Indication: Waldenstrom^s macroglobulinaemia
     Route: 065
  2. LENALIDOMIDE [Suspect]
     Active Substance: LENALIDOMIDE
     Indication: Waldenstrom^s macroglobulinaemia
     Route: 065
  3. BORTEZOMIB [Suspect]
     Active Substance: BORTEZOMIB
     Indication: Waldenstrom^s macroglobulinaemia
     Route: 065
  4. DARATUMUMAB [Suspect]
     Active Substance: DARATUMUMAB
     Indication: Waldenstrom^s macroglobulinaemia
     Route: 065
  5. DARATUMUMAB [Suspect]
     Active Substance: DARATUMUMAB
     Indication: Waldenstrom^s macroglobulinaemia
     Route: 065
  6. BENDAMUSTINE [Suspect]
     Active Substance: BENDAMUSTINE
     Indication: Waldenstrom^s macroglobulinaemia
     Route: 065
  7. CYCLOPHOSPHAMIDE [Suspect]
     Active Substance: CYCLOPHOSPHAMIDE
     Indication: Waldenstrom^s macroglobulinaemia
     Route: 065
  8. VINCRISTINE [Suspect]
     Active Substance: VINCRISTINE
     Indication: Waldenstrom^s macroglobulinaemia
     Route: 065
  9. PREDNISONE [Suspect]
     Active Substance: PREDNISONE
     Indication: Waldenstrom^s macroglobulinaemia
     Route: 065

REACTIONS (1)
  - Treatment failure [Unknown]
